FAERS Safety Report 9746125 (Version 1)
Quarter: 2013Q4

REPORT INFORMATION
  Report Type: Spontaneous
  Country: IT (occurrence: IT)
  Receive Date: 20131211
  Receipt Date: 20131211
  Transmission Date: 20140711
  Serious: No
  Sender: FDA-Public Use
  Company Number: IT-GILEAD-2009-0025288

PATIENT
  Sex: Female

DRUGS (4)
  1. ATRIPLA [Suspect]
     Indication: HIV INFECTION
  2. VIREAD [Suspect]
     Indication: HIV INFECTION
  3. EPIVIR [Suspect]
  4. REYATAZ [Suspect]

REACTIONS (1)
  - Rash [Recovered/Resolved]
